FAERS Safety Report 24468212 (Version 1)
Quarter: 2024Q4

REPORT INFORMATION
  Report Type: Spontaneous
  Country: AU (occurrence: AU)
  Receive Date: 20241018
  Receipt Date: 20241018
  Transmission Date: 20250115
  Serious: Yes (Death, Other)
  Sender: NOVARTIS
  Company Number: AU-SANDOZ-SDZ2024AU087878

PATIENT
  Age: 61 Year
  Sex: Male

DRUGS (10)
  1. IMATINIB [Suspect]
     Active Substance: IMATINIB
     Indication: Chronic myeloid leukaemia
     Dosage: 400 MG, QD
     Route: 065
  2. IMATINIB [Suspect]
     Active Substance: IMATINIB
     Dosage: 600 MG, QD
     Route: 065
  3. IMATINIB [Suspect]
     Active Substance: IMATINIB
     Dosage: UNK, (~3 MONTHS OFF RX, IMATINIB COMMENCED 1/6/23)
     Route: 065
     Dates: start: 20230517
  4. IMATINIB [Suspect]
     Active Substance: IMATINIB
     Dosage: UNK, (~2 WEEKS ON IMATINIB 400MG)
     Route: 065
     Dates: start: 20230619
  5. IMATINIB [Suspect]
     Active Substance: IMATINIB
     Dosage: UNK, (4 WEEKS IMATINIB 400MG)
     Route: 065
     Dates: start: 20230704
  6. IMATINIB [Suspect]
     Active Substance: IMATINIB
     Dosage: UNK, (4 WEEKS IMATINIB 600MG)
     Route: 065
     Dates: start: 20230727
  7. IMATINIB [Suspect]
     Active Substance: IMATINIB
     Dosage: UNK, (6 MONTH IMATINIB 600MG)
     Route: 065
     Dates: start: 20231205
  8. IMATINIB [Suspect]
     Active Substance: IMATINIB
     Dosage: UNK, (9 MONTH IMATINIB 600MG)
     Route: 065
     Dates: start: 20240311
  9. IMATINIB [Suspect]
     Active Substance: IMATINIB
     Dosage: UNK, (12 MONTHS IMATINIB 600MG)
     Route: 065
     Dates: start: 20240618
  10. IMATINIB [Suspect]
     Active Substance: IMATINIB
     Dosage: UNK, (15 MONTHS IMATINIB 600MG)
     Route: 065
     Dates: start: 20240912

REACTIONS (2)
  - Death [Fatal]
  - Eczema [Unknown]

NARRATIVE: CASE EVENT DATE: 20190101
